FAERS Safety Report 17100689 (Version 2)
Quarter: 2019Q4

REPORT INFORMATION
  Report Type: Spontaneous
  Country: US (occurrence: US)
  Receive Date: 20191202
  Receipt Date: 20191224
  Transmission Date: 20200122
  Serious: No
  Sender: FDA-Public Use
  Company Number: US-SA-2019SA326908

PATIENT
  Age: 75 Year
  Sex: Male
  Weight: 92.06 kg

DRUGS (10)
  1. CITRACAL PLUS [Concomitant]
     Active Substance: CALCIUM\MAGNESIUM\VITAMIN D\ZINC
  2. OMEPRAZOLE. [Concomitant]
     Active Substance: OMEPRAZOLE
  3. NEBIVOLOL. [Concomitant]
     Active Substance: NEBIVOLOL
  4. VITAMIN D3 [Concomitant]
     Active Substance: CHOLECALCIFEROL
  5. CALCITRIOL. [Concomitant]
     Active Substance: CALCITRIOL
  6. ALLOPURINOL. [Concomitant]
     Active Substance: ALLOPURINOL
  7. TRADJENTA [Concomitant]
     Active Substance: LINAGLIPTIN
  8. LANTUS [Concomitant]
     Active Substance: INSULIN GLARGINE
  9. AMLODIPINE [Concomitant]
     Active Substance: AMLODIPINE BESYLATE
  10. PRALUENT [Suspect]
     Active Substance: ALIROCUMAB
     Indication: HYPERLIPIDAEMIA
     Dosage: 75 MG, QOW
     Route: 058
     Dates: start: 2018

REACTIONS (1)
  - Nasopharyngitis [Recovered/Resolved]
